FAERS Safety Report 24402981 (Version 1)
Quarter: 2024Q4

REPORT INFORMATION
  Report Type: Report from Study
  Country: US (occurrence: US)
  Receive Date: 20241007
  Receipt Date: 20241007
  Transmission Date: 20250115
  Serious: No
  Sender: ROCHE
  Company Number: US-ROCHE-3304077

PATIENT
  Age: 12 Year
  Sex: Male

DRUGS (3)
  1. GAZYVA [Suspect]
     Active Substance: OBINUTUZUMAB
     Indication: Focal segmental glomerulosclerosis
     Dosage: INFUSE 100MG INTRAVENOUSLY ON DAY 1 AND THEN INFUSE 700MG INTRAVENOUSLY ON DAY 2?800 MG IV ONE TIME
     Route: 042
  2. GAZYVA [Suspect]
     Active Substance: OBINUTUZUMAB
     Indication: Hypoalbuminaemia
  3. GAZYVA [Suspect]
     Active Substance: OBINUTUZUMAB
     Indication: Nephrotic syndrome

REACTIONS (3)
  - Off label use [Unknown]
  - Off label use [Unknown]
  - Illness [Unknown]
